FAERS Safety Report 7575488-8 (Version None)
Quarter: 2011Q2

REPORT INFORMATION
  Report Type: 
  Country: None (occurrence: None)
  Receive Date: 20110627
  Receipt Date: 20110616
  Transmission Date: 20111010
  Serious: Yes (Death)
  Sender: FDA-Public Use
  Company Number: CH-B.I. PHARMACEUTICALS,INC./RIDGEFIELD-2011-DE-03631DE

PATIENT

DRUGS (1)
  1. SPIRIVA [Suspect]

REACTIONS (1)
  - DEATH [None]
